FAERS Safety Report 9677103 (Version 1)
Quarter: 2013Q4

REPORT INFORMATION
  Report Type: Report from Study
  Country: US (occurrence: US)
  Receive Date: 20131108
  Receipt Date: 20131108
  Transmission Date: 20140711
  Serious: Yes (Other)
  Sender: FDA-Public Use
  Company Number: US-ROCHE-1296794

PATIENT
  Sex: Male

DRUGS (3)
  1. KLONOPIN [Suspect]
     Indication: PRODUCT USED FOR UNKNOWN INDICATION
     Route: 048
  2. SEROQUEL [Concomitant]
     Route: 048
  3. STRATTERA [Concomitant]
     Route: 048

REACTIONS (13)
  - Injury [Recovered/Resolved]
  - Head injury [Recovered/Resolved]
  - Mood altered [Unknown]
  - Headache [Unknown]
  - Dermatitis contact [Unknown]
  - Back pain [Unknown]
  - Depression [Unknown]
  - Agitation [Unknown]
  - Fatigue [Unknown]
  - Somnolence [Unknown]
  - Disturbance in attention [Unknown]
  - Nocturia [Unknown]
  - Loss of libido [Unknown]
